FAERS Safety Report 21664666 (Version 2)
Quarter: 2023Q1

REPORT INFORMATION
  Report Type: Spontaneous
  Country: US (occurrence: US)
  Receive Date: 20221130
  Receipt Date: 20230103
  Transmission Date: 20230418
  Serious: Yes (Hospitalization)
  Sender: FDA-Public Use
  Company Number: US-KARYOPHARM-2022KPT001465

PATIENT

DRUGS (29)
  1. XPOVIO [Suspect]
     Active Substance: SELINEXOR
     Indication: Plasma cell myeloma
     Dosage: 80 MG, WEEKLY
     Route: 048
     Dates: start: 20200615
  2. XPOVIO [Suspect]
     Active Substance: SELINEXOR
     Dosage: 80 MG, WEEKLY
     Route: 048
     Dates: start: 202210, end: 20221207
  3. XPOVIO [Suspect]
     Active Substance: SELINEXOR
     Dosage: 80 MG, WEEKLY
     Route: 048
     Dates: start: 202212
  4. ACYCLOVIR [Concomitant]
     Active Substance: ACYCLOVIR
  5. ALBUTEROL SULFATE [Concomitant]
     Active Substance: ALBUTEROL SULFATE
  6. AMLODIPINE [Concomitant]
     Active Substance: AMLODIPINE BESYLATE
  7. AZELASTINE [Concomitant]
     Active Substance: AZELASTINE
  8. BENZONATATE [Concomitant]
     Active Substance: BENZONATATE
  9. CARVEDILOL [Concomitant]
     Active Substance: CARVEDILOL
  10. DAPSONE [Concomitant]
     Active Substance: DAPSONE
  11. DEXAMETHASONE [Concomitant]
     Active Substance: DEXAMETHASONE
  12. DULOXETINE [Concomitant]
     Active Substance: DULOXETINE
  13. ERYTHROMYCIN [Concomitant]
     Active Substance: ERYTHROMYCIN
  14. FEXOFENADINE [Concomitant]
     Active Substance: FEXOFENADINE HYDROCHLORIDE
  15. FOLIC ACID [Concomitant]
     Active Substance: FOLIC ACID
  16. HUMALOG [Concomitant]
     Active Substance: INSULIN LISPRO
  17. LANTUS [Concomitant]
     Active Substance: INSULIN GLARGINE
  18. LORAZEPAM [Concomitant]
     Active Substance: LORAZEPAM
  19. LOSARTAN [Concomitant]
     Active Substance: LOSARTAN
  20. MONTELUKAST [Concomitant]
     Active Substance: MONTELUKAST SODIUM
  21. ONDANSETRON [Concomitant]
     Active Substance: ONDANSETRON
  22. PANTOPRAZOLE [Concomitant]
     Active Substance: PANTOPRAZOLE
  23. PROCHLORPERAZINE [Concomitant]
     Active Substance: PROCHLORPERAZINE
  24. TAMIFLU [Concomitant]
     Active Substance: OSELTAMIVIR PHOSPHATE
  25. TAMSULOSIN [Concomitant]
     Active Substance: TAMSULOSIN
  26. VANCOMYCIN [Concomitant]
     Active Substance: VANCOMYCIN
  27. VELCADE [Concomitant]
     Active Substance: BORTEZOMIB
  28. ZOLEDRONIC ACID [Concomitant]
     Active Substance: ZOLEDRONIC ACID
  29. ZOLPIDEM [Concomitant]
     Active Substance: ZOLPIDEM TARTRATE

REACTIONS (2)
  - Influenza [Unknown]
  - Pneumonia [Recovered/Resolved]

NARRATIVE: CASE EVENT DATE: 20221122
